FAERS Safety Report 10170814 (Version 2)
Quarter: 2014Q2

REPORT INFORMATION
  Report Type: Spontaneous
  Country: BR (occurrence: BR)
  Receive Date: 20140514
  Receipt Date: 20140528
  Transmission Date: 20141212
  Serious: Yes (Other)
  Sender: FDA-Public Use
  Company Number: BR-BRISTOL-MYERS SQUIBB COMPANY-20718391

PATIENT
  Age: 56 Year
  Sex: Male

DRUGS (3)
  1. KOMBIGLYZE XR [Suspect]
     Indication: DIABETES MELLITUS
     Dosage: 1 DF=5 MG/1000 MG
     Route: 048
     Dates: start: 2013
  2. DIAMICRON [Concomitant]
  3. GLIFAGE [Concomitant]

REACTIONS (1)
  - Retinal vascular disorder [Recovering/Resolving]
